FAERS Safety Report 7750948-5 (Version None)
Quarter: 2011Q3

REPORT INFORMATION
  Report Type: 
  Country: None (occurrence: None)
  Receive Date: 20110914
  Receipt Date: 20110902
  Transmission Date: 20111222
  Serious: Yes (Hospitalization)
  Sender: FDA-Public Use
  Company Number: US-ELI_LILLY_AND_COMPANY-US201109002246

PATIENT
  Age: 64 Year
  Sex: Male

DRUGS (6)
  1. HUMULIN R [Suspect]
     Dosage: 190 U, EACH EVENING
     Dates: start: 20090101
  2. HUMULIN R [Suspect]
     Indication: DIABETES MELLITUS
     Dosage: 140 U, EACH MORNING
     Dates: start: 20090101
  3. LASIX [Concomitant]
     Dosage: UNK
  4. DIGOXIN [Concomitant]
     Dosage: UNK
  5. HUMULIN R [Suspect]
     Dosage: 310 U, OTHER
     Dates: start: 20090101
  6. PLAVIX [Concomitant]
     Dosage: UNK

REACTIONS (2)
  - CHRONIC OBSTRUCTIVE PULMONARY DISEASE [None]
  - INTERCEPTED DRUG ADMINISTRATION ERROR [None]
